FAERS Safety Report 9088115 (Version 2)
Quarter: 2013Q2

REPORT INFORMATION
  Report Type: Report from Study
  Country: ES (occurrence: ES)
  Receive Date: 20130218
  Receipt Date: 20130509
  Transmission Date: 20140414
  Serious: Yes (Hospitalization, Other)
  Sender: FDA-Public Use
  Company Number: PHHO2011ES16792

PATIENT
  Age: 64 Year
  Sex: Male
  Weight: 102 kg

DRUGS (9)
  1. BLINDED ALISKIREN [Suspect]
     Indication: CARDIOVASCULAR DISORDER
     Dosage: CODE NOT BROKEN
     Route: 048
     Dates: start: 20100422
  2. BLINDED NO TREATMENT RECEIVED [Suspect]
     Indication: CARDIOVASCULAR DISORDER
     Dosage: CODE NOT BROKEN
     Route: 048
     Dates: start: 20100422
  3. BLINDED PLACEBO [Suspect]
     Indication: CARDIOVASCULAR DISORDER
     Dosage: CODE NOT BROKEN
     Route: 048
     Dates: start: 20100422
  4. MANIDIPINE [Suspect]
     Indication: HYPERTENSION
     Dosage: 20 MG, QD
     Route: 048
     Dates: end: 20101103
  5. PIOGLITAZONE [Suspect]
     Indication: DIABETES MELLITUS
     Dosage: 30 MG, QD
     Route: 048
  6. OLMESARTAN [Concomitant]
     Indication: HYPERTENSION
     Dosage: 40 MG, QD
     Route: 048
  7. FUROSEMIDE [Concomitant]
     Indication: HYPERTENSION
     Dosage: 40 MG, QD
     Route: 048
  8. MOXONIDINE [Concomitant]
     Indication: HYPERTENSION
     Dosage: 0.8 MG, BID
     Route: 048
  9. ASPIRIN [Concomitant]
     Dosage: 100 MG, QD
     Route: 048

REACTIONS (7)
  - Swelling [Recovered/Resolved]
  - Respiratory tract infection [Recovered/Resolved]
  - Gastritis [Recovered/Resolved]
  - Anaemia [Recovered/Resolved]
  - Gastrointestinal tract adenoma [Recovered/Resolved]
  - Intestinal haemorrhage [Recovered/Resolved]
  - Intestinal polyp [Recovered/Resolved]
